FAERS Safety Report 4608951-X (Version None)
Quarter: 2005Q1

REPORT INFORMATION
  Report Type: 
  Country: None (occurrence: None)
  Receive Date: 20050311
  Receipt Date: 20050225
  Transmission Date: 20050727
  Serious: Yes (Hospitalization)
  Sender: FDA-Public Use
  Company Number: 2000-BP-01232

PATIENT
  Age: 36 Year
  Sex: Female
  Weight: 51 kg

DRUGS (6)
  1. VIRAMUNE [Suspect]
     Indication: HIV INFECTION
     Dosage: 400 MG (200 MG, 1 TABLET BID), PO
     Route: 048
     Dates: start: 19991019, end: 20000629
  2. FTC PLACEBO (BLIND) [Concomitant]
  3. 3TC PLACEBO (BLIND) [Concomitant]
  4. STAVUDINE [Concomitant]
  5. FOLIC ACID [Concomitant]
  6. FERROUS SULFATE TAB [Concomitant]

REACTIONS (4)
  - ABORTION SPONTANEOUS INCOMPLETE [None]
  - DRUG EXPOSURE DURING PREGNANCY [None]
  - PELVIC INFLAMMATORY DISEASE [None]
  - PREGNANCY [None]
